FAERS Safety Report 6620919-0 (Version None)
Quarter: 2010Q1

REPORT INFORMATION
  Report Type: 
  Country: None (occurrence: None)
  Receive Date: 20100309
  Receipt Date: 20090907
  Transmission Date: 20100710
  Serious: Yes (Life-Threatening)
  Sender: FDA-Public Use
  Company Number: JP-SANOFI-AVENTIS-A01200909361

PATIENT
  Age: 59 Year
  Sex: Male
  Weight: 81 kg

DRUGS (12)
  1. OXALIPLATIN [Suspect]
     Indication: COLON CANCER
     Dosage: UNIT DOSE: 84.2 MG/M2
     Route: 041
     Dates: start: 20090707, end: 20090707
  2. CALCIUM LEVOFOLINATE [Suspect]
     Dosage: UNIT DOSE: 205.3 MG/M2
     Route: 041
     Dates: start: 20090707, end: 20090707
  3. FLUOROURACIL [Concomitant]
     Indication: COLON CANCER
     Route: 042
     Dates: start: 20090210, end: 20090210
  4. FLUOROURACIL [Concomitant]
     Route: 042
     Dates: start: 20090622, end: 20090622
  5. GASTER [Concomitant]
     Indication: PREMEDICATION
     Route: 042
     Dates: start: 20090210, end: 20090707
  6. DECADRON [Concomitant]
     Indication: PREMEDICATION
     Route: 042
     Dates: start: 20090210, end: 20090707
  7. PERSANTINE [Concomitant]
     Indication: HYPERTENSION
     Route: 048
  8. CARTEOLOL HYDROCHLORIDE [Concomitant]
     Indication: HYPERTENSION
     Route: 048
  9. EUGLUCON [Concomitant]
     Indication: DIABETES MELLITUS
     Route: 048
  10. METFORMIN HCL [Concomitant]
     Indication: DIABETES MELLITUS
     Route: 048
  11. CELECOXIB [Concomitant]
     Indication: RHEUMATOID ARTHRITIS
     Route: 048
  12. ACINON [Concomitant]
     Route: 048

REACTIONS (2)
  - ACUTE RESPIRATORY DISTRESS SYNDROME [None]
  - ANAPHYLACTIC SHOCK [None]
